FAERS Safety Report 8027834-9 (Version None)
Quarter: 2012Q1

REPORT INFORMATION
  Report Type: 
  Country: None (occurrence: None)
  Receive Date: 20120106
  Receipt Date: 20111229
  Transmission Date: 20120608
  Serious: Yes (Other)
  Sender: FDA-Public Use
  Company Number: US-BAYER-2012-000136

PATIENT
  Age: 22 Year
  Sex: Female
  Weight: 105.22 kg

DRUGS (15)
  1. YASMIN [Suspect]
     Indication: PREMENSTRUAL SYNDROME
  2. YAZ [Suspect]
     Indication: ACNE
  3. YAZ [Suspect]
     Indication: PREMENSTRUAL SYNDROME
  4. YAZ [Suspect]
     Indication: POLYCYSTIC OVARIES
  5. NSAID'S [Concomitant]
     Dosage: UNK
     Dates: start: 20000101
  6. SEASONIQUE [Concomitant]
     Indication: CONTRACEPTION
  7. SPIRONOLACTONE [Concomitant]
     Indication: POLYCYSTIC OVARIES
     Dosage: UNK
     Dates: start: 20000101
  8. YASMIN [Suspect]
     Indication: POLYCYSTIC OVARIES
  9. YASMIN [Suspect]
     Indication: CONTRACEPTION
     Dosage: UNK
     Dates: start: 20010101, end: 20080101
  10. YASMIN [Suspect]
     Indication: ACNE
  11. YAZ [Suspect]
     Indication: CONTRACEPTION
     Dosage: UNK
     Dates: start: 20010101, end: 20080101
  12. SPIRONOLACTONE [Concomitant]
     Indication: ACNE CYSTIC
  13. MINOCYCLINE HCL [Concomitant]
     Dosage: UNK
     Dates: start: 20000101
  14. CYMBALTA [Concomitant]
  15. MIRENA [Concomitant]
     Dosage: UNK
     Dates: start: 20090101

REACTIONS (12)
  - FLATULENCE [None]
  - ABDOMINAL PAIN [None]
  - CHOLECYSTITIS CHRONIC [None]
  - POST GASTRIC SURGERY SYNDROME [None]
  - EMOTIONAL DISTRESS [None]
  - PAIN [None]
  - ENDOMETRIOSIS [None]
  - DEPRESSION [None]
  - PANIC ATTACK [None]
  - BACK PAIN [None]
  - DYSPNOEA [None]
  - FAECAL INCONTINENCE [None]
